FAERS Safety Report 22958632 (Version 2)
Quarter: 2024Q1

REPORT INFORMATION
  Report Type: Spontaneous
  Country: JP (occurrence: JP)
  Receive Date: 20230919
  Receipt Date: 20240119
  Transmission Date: 20240410
  Serious: Yes (Other)
  Sender: FDA-Public Use
  Company Number: JP-SUN PHARMACEUTICAL INDUSTRIES LTD-2023RR-387255

PATIENT
  Age: 8 Decade
  Sex: Female

DRUGS (4)
  1. CARBAMAZEPINE [Suspect]
     Active Substance: CARBAMAZEPINE
     Indication: Pain
     Dosage: UNK
     Route: 065
  2. LEVETIRACETAM [Suspect]
     Active Substance: LEVETIRACETAM
     Indication: Glossopharyngeal neuralgia
     Dosage: 500 MILLIGRAM, SINGLE
     Route: 048
  3. MIROGABALIN [Concomitant]
     Active Substance: MIROGABALIN
     Indication: Pain
     Dosage: 10 MILLIGRAM, DAILY
     Route: 048
  4. MIROGABALIN [Concomitant]
     Active Substance: MIROGABALIN
     Dosage: 15 MILLIGRAM, DAILY
     Route: 048

REACTIONS (2)
  - Interstitial lung disease [Recovered/Resolved]
  - Off label use [Unknown]
